FAERS Safety Report 9062690 (Version 1)
Quarter: 2013Q1

REPORT INFORMATION
  Report Type: Report from Study
  Country: CH (occurrence: CH)
  Receive Date: 20130213
  Receipt Date: 20130213
  Transmission Date: 20140127
  Serious: Yes (Other)
  Sender: FDA-Public Use
  Company Number: CH-INCYTE CORPORATION-2013IN000263

PATIENT
  Sex: 0

DRUGS (2)
  1. INC424 [Suspect]
     Indication: MYELOFIBROSIS
     Dosage: UNK
     Route: 048
     Dates: start: 20130111
  2. INC424 [Suspect]
     Dosage: UNK
     Route: 048
     Dates: start: 20130116

REACTIONS (2)
  - Depression [Recovered/Resolved]
  - Irritability [Recovered/Resolved]
